FAERS Safety Report 7197630-3 (Version None)
Quarter: 2010Q4

REPORT INFORMATION
  Report Type: 
  Country: None (occurrence: None)
  Receive Date: 20101227
  Receipt Date: 20101216
  Transmission Date: 20110411
  Serious: Yes (Other)
  Sender: FDA-Public Use
  Company Number: ES-PFIZER INC-2010178218

PATIENT
  Age: 90 Year
  Sex: Male

DRUGS (7)
  1. TRANGOREX [Suspect]
     Dosage: 200 MG TABLET, DOSE AND REGIMEN UNKNOWN
     Route: 048
     Dates: start: 20080220
  2. QUINAPRIL HCL [Suspect]
     Dosage: UNK
     Route: 048
     Dates: start: 20080111
  3. UROLOSIN [Suspect]
     Dosage: UNK
     Route: 048
     Dates: start: 20080220
  4. DUTASTERIDE [Suspect]
     Dosage: UNK
     Route: 048
     Dates: start: 20081103
  5. AMERIDE [Suspect]
     Dosage: UNK
     Route: 048
     Dates: start: 20090415
  6. AUXINA A MASIVA [Suspect]
     Dosage: UNK
     Route: 048
     Dates: start: 20100408
  7. SINTROM [Suspect]
     Dosage: UNK
     Route: 048
     Dates: start: 20090513

REACTIONS (1)
  - RETINOPATHY [None]
